FAERS Safety Report 25870915 (Version 1)
Quarter: 2025Q4

REPORT INFORMATION
  Report Type: Spontaneous
  Country: CN (occurrence: CN)
  Receive Date: 20251001
  Receipt Date: 20251001
  Transmission Date: 20260118
  Serious: Yes (Other)
  Sender: MYLAN
  Company Number: CN-MYLANLABS-2025M1082902

PATIENT
  Age: 28 Year
  Sex: Male
  Weight: 75 kg

DRUGS (32)
  1. CELEBREX [Suspect]
     Active Substance: CELECOXIB
     Indication: Intentional self-injury
     Dosage: 6 DOSAGE FORM, QD
     Dates: start: 20250904, end: 20250904
  2. CELEBREX [Suspect]
     Active Substance: CELECOXIB
     Dosage: 6 DOSAGE FORM, QD
     Dates: start: 20250904, end: 20250904
  3. CELEBREX [Suspect]
     Active Substance: CELECOXIB
     Dosage: 6 DOSAGE FORM, QD
     Route: 048
     Dates: start: 20250904, end: 20250904
  4. CELEBREX [Suspect]
     Active Substance: CELECOXIB
     Dosage: 6 DOSAGE FORM, QD
     Route: 048
     Dates: start: 20250904, end: 20250904
  5. CELEBREX [Suspect]
     Active Substance: CELECOXIB
     Dosage: UNK
  6. CELEBREX [Suspect]
     Active Substance: CELECOXIB
     Dosage: UNK
  7. CELEBREX [Suspect]
     Active Substance: CELECOXIB
     Dosage: UNK
     Route: 048
  8. CELEBREX [Suspect]
     Active Substance: CELECOXIB
     Dosage: UNK
     Route: 048
  9. ACETAMINOPHEN\AMANTADINE HYDROCHLORIDE [Suspect]
     Active Substance: ACETAMINOPHEN\AMANTADINE HYDROCHLORIDE
     Indication: Intentional self-injury
     Dosage: 16 DOSAGE FORM, QD
     Dates: start: 20250904, end: 20250904
  10. ACETAMINOPHEN\AMANTADINE HYDROCHLORIDE [Suspect]
     Active Substance: ACETAMINOPHEN\AMANTADINE HYDROCHLORIDE
     Dosage: 16 DOSAGE FORM, QD
     Dates: start: 20250904, end: 20250904
  11. ACETAMINOPHEN\AMANTADINE HYDROCHLORIDE [Suspect]
     Active Substance: ACETAMINOPHEN\AMANTADINE HYDROCHLORIDE
     Dosage: 16 DOSAGE FORM, QD
     Route: 048
     Dates: start: 20250904, end: 20250904
  12. ACETAMINOPHEN\AMANTADINE HYDROCHLORIDE [Suspect]
     Active Substance: ACETAMINOPHEN\AMANTADINE HYDROCHLORIDE
     Dosage: 16 DOSAGE FORM, QD
     Route: 048
     Dates: start: 20250904, end: 20250904
  13. ACETAMINOPHEN\AMANTADINE HYDROCHLORIDE [Suspect]
     Active Substance: ACETAMINOPHEN\AMANTADINE HYDROCHLORIDE
     Dosage: UNK
  14. ACETAMINOPHEN\AMANTADINE HYDROCHLORIDE [Suspect]
     Active Substance: ACETAMINOPHEN\AMANTADINE HYDROCHLORIDE
     Dosage: UNK
  15. ACETAMINOPHEN\AMANTADINE HYDROCHLORIDE [Suspect]
     Active Substance: ACETAMINOPHEN\AMANTADINE HYDROCHLORIDE
     Dosage: UNK
     Route: 048
  16. ACETAMINOPHEN\AMANTADINE HYDROCHLORIDE [Suspect]
     Active Substance: ACETAMINOPHEN\AMANTADINE HYDROCHLORIDE
     Dosage: UNK
     Route: 048
  17. CEFIXIME [Suspect]
     Active Substance: CEFIXIME
     Indication: Intentional self-injury
     Dosage: 20 DOSAGE FORM, QD
     Dates: start: 20250904, end: 20250904
  18. CEFIXIME [Suspect]
     Active Substance: CEFIXIME
     Dosage: 20 DOSAGE FORM, QD
     Dates: start: 20250904, end: 20250904
  19. CEFIXIME [Suspect]
     Active Substance: CEFIXIME
     Dosage: 20 DOSAGE FORM, QD
     Route: 048
     Dates: start: 20250904, end: 20250904
  20. CEFIXIME [Suspect]
     Active Substance: CEFIXIME
     Dosage: 20 DOSAGE FORM, QD
     Route: 048
     Dates: start: 20250904, end: 20250904
  21. CEFIXIME [Suspect]
     Active Substance: CEFIXIME
     Dosage: UNK
  22. CEFIXIME [Suspect]
     Active Substance: CEFIXIME
     Dosage: UNK
  23. CEFIXIME [Suspect]
     Active Substance: CEFIXIME
     Dosage: UNK
     Route: 048
  24. CEFIXIME [Suspect]
     Active Substance: CEFIXIME
     Dosage: UNK
     Route: 048
  25. ATORVASTATIN CALCIUM [Suspect]
     Active Substance: ATORVASTATIN CALCIUM
     Indication: Intentional self-injury
     Dosage: 14 DOSAGE FORM, QD
     Dates: start: 20250904, end: 20250904
  26. ATORVASTATIN CALCIUM [Suspect]
     Active Substance: ATORVASTATIN CALCIUM
     Dosage: 14 DOSAGE FORM, QD
     Dates: start: 20250904, end: 20250904
  27. ATORVASTATIN CALCIUM [Suspect]
     Active Substance: ATORVASTATIN CALCIUM
     Dosage: 14 DOSAGE FORM, QD
     Route: 048
     Dates: start: 20250904, end: 20250904
  28. ATORVASTATIN CALCIUM [Suspect]
     Active Substance: ATORVASTATIN CALCIUM
     Dosage: 14 DOSAGE FORM, QD
     Route: 048
     Dates: start: 20250904, end: 20250904
  29. ATORVASTATIN CALCIUM [Suspect]
     Active Substance: ATORVASTATIN CALCIUM
     Dosage: UNK
  30. ATORVASTATIN CALCIUM [Suspect]
     Active Substance: ATORVASTATIN CALCIUM
     Dosage: UNK
  31. ATORVASTATIN CALCIUM [Suspect]
     Active Substance: ATORVASTATIN CALCIUM
     Dosage: UNK
     Route: 048
  32. ATORVASTATIN CALCIUM [Suspect]
     Active Substance: ATORVASTATIN CALCIUM
     Dosage: UNK
     Route: 048

REACTIONS (1)
  - Toxicity to various agents [Recovering/Resolving]

NARRATIVE: CASE EVENT DATE: 20250904
